FAERS Safety Report 6147005-0 (Version None)
Quarter: 2009Q2

REPORT INFORMATION
  Report Type: 
  Country: None (occurrence: None)
  Receive Date: 20090407
  Receipt Date: 20090330
  Transmission Date: 20091009
  Serious: Yes (Other)
  Sender: FDA-Public Use
  Company Number: DE-JNJCH-2009008607

PATIENT
  Sex: Male

DRUGS (1)
  1. REGAINE MAENNER [Suspect]
     Indication: ALOPECIA
     Dosage: TEXT:UNSPECIFIED
     Route: 061

REACTIONS (1)
  - LIVER FUNCTION TEST ABNORMAL [None]
